FAERS Safety Report 18768328 (Version 6)
Quarter: 2021Q1

REPORT INFORMATION
  Report Type: Spontaneous
  Country: US (occurrence: US)
  Receive Date: 20210121
  Receipt Date: 20210220
  Transmission Date: 20210419
  Serious: No
  Sender: FDA-Public Use
  Company Number: US-UNITED THERAPEUTICS-UNT-2021-000365

PATIENT
  Age: 41 Year
  Sex: Female
  Weight: 75.74 kg

DRUGS (4)
  1. REMODULIN [Suspect]
     Active Substance: TREPROSTINIL
     Dosage: UNK, CONTINUING
     Route: 058
  2. REMODULIN [Suspect]
     Active Substance: TREPROSTINIL
     Dosage: 0.040 ?G/KG, CONTINUING
     Route: 058
  3. REMODULIN [Suspect]
     Active Substance: TREPROSTINIL
     Indication: PULMONARY ARTERIAL HYPERTENSION
     Dosage: UNK, CONTINUING
     Route: 058
     Dates: start: 20200123
  4. REMODULIN [Suspect]
     Active Substance: TREPROSTINIL
     Dosage: UNK, CONTINUING
     Dates: start: 20210202

REACTIONS (8)
  - Peripheral swelling [Unknown]
  - Device maintenance issue [Unknown]
  - Infusion site pain [Unknown]
  - Weight increased [Unknown]
  - Pain in extremity [Unknown]
  - Dermatitis contact [Unknown]
  - Infusion site swelling [Unknown]
  - Infusion site scar [Unknown]

NARRATIVE: CASE EVENT DATE: 202102
